FAERS Safety Report 17605449 (Version 1)
Quarter: 2020Q1

REPORT INFORMATION
  Report Type: Spontaneous
  Country: US (occurrence: US)
  Receive Date: 20200331
  Receipt Date: 20200331
  Transmission Date: 20200409
  Serious: No
  Sender: FDA-Public Use
  Company Number: US-SA-2020SA077925

PATIENT
  Age: 69 Year
  Sex: Female

DRUGS (9)
  1. DUPIXENT [Suspect]
     Active Substance: DUPILUMAB
     Indication: DERMATITIS ATOPIC
     Dosage: 300 MG/2ML, QOW
     Route: 058
     Dates: start: 20191018
  2. TRAZODONE [Concomitant]
     Active Substance: TRAZODONE HYDROCHLORIDE
  3. METOPROLOL SUCCINATE. [Concomitant]
     Active Substance: METOPROLOL SUCCINATE
  4. LINZESS [Concomitant]
     Active Substance: LINACLOTIDE
  5. HYDROXYCHLOROQUINE [Concomitant]
     Active Substance: HYDROXYCHLOROQUINE
  6. CHANTIX [Concomitant]
     Active Substance: VARENICLINE TARTRATE
  7. SIMVASTATIN. [Concomitant]
     Active Substance: SIMVASTATIN
  8. OMEPRAZOLE. [Concomitant]
     Active Substance: OMEPRAZOLE
  9. FLUOXETINE [Concomitant]
     Active Substance: FLUOXETINE HYDROCHLORIDE

REACTIONS (4)
  - Sleep disorder [Not Recovered/Not Resolved]
  - Dermatitis atopic [Not Recovered/Not Resolved]
  - Discomfort [Not Recovered/Not Resolved]
  - Rash [Not Recovered/Not Resolved]
